FAERS Safety Report 12321618 (Version 1)
Quarter: 2016Q2

REPORT INFORMATION
  Report Type: Spontaneous
  Country: US (occurrence: US)
  Receive Date: 20160502
  Receipt Date: 20160502
  Transmission Date: 20160815
  Serious: No
  Sender: FDA-Public Use
  Company Number: US-BAYER-2016-079022

PATIENT

DRUGS (2)
  1. HISMANAL [Concomitant]
     Active Substance: ASTEMIZOLE
     Indication: ALLERGIC SINUSITIS
     Dosage: UNK
  2. CLARITIN [Suspect]
     Active Substance: LORATADINE
     Dosage: UNK

REACTIONS (1)
  - Drug ineffective [None]
